FAERS Safety Report 4808475-0 (Version None)
Quarter: 2005Q4

REPORT INFORMATION
  Report Type: 
  Country: None (occurrence: None)
  Receive Date: 20051021
  Receipt Date: 20041006
  Transmission Date: 20060501
  Serious: Yes (Hospitalization)
  Sender: FDA-Public Use
  Company Number: EWC041040962

PATIENT
  Age: 71 Year
  Sex: Female

DRUGS (2)
  1. ZYPREXA [Suspect]
     Indication: BIPOLAR DISORDER
     Dosage: 15 MG DAY
     Dates: start: 20040802
  2. LORAZEPAM [Concomitant]

REACTIONS (7)
  - ANAEMIA OF CHRONIC DISEASE [None]
  - ERYTHEMA [None]
  - HYPERHIDROSIS [None]
  - PALLOR [None]
  - PLATELET COUNT DECREASED [None]
  - SOMNOLENCE [None]
  - WHITE BLOOD CELL COUNT DECREASED [None]
